FAERS Safety Report 12684459 (Version 1)
Quarter: 2016Q3

REPORT INFORMATION
  Report Type: Spontaneous
  Country: US (occurrence: US)
  Receive Date: 20160825
  Receipt Date: 20160825
  Transmission Date: 20161109
  Serious: No
  Sender: FDA-Public Use
  Company Number: US-DRREDDYS-USA/USA/16/0081495

PATIENT
  Age: 46 Year
  Sex: Female
  Weight: 63.04 kg

DRUGS (1)
  1. SUMATRIPTAN INJECTION USP, 6 MG/0.5 ML [Suspect]
     Active Substance: SUMATRIPTAN
     Indication: MIGRAINE
     Route: 058
     Dates: start: 20160713

REACTIONS (6)
  - Injection site rash [Unknown]
  - Injection site pain [Unknown]
  - Product physical issue [Unknown]
  - Injection site reaction [Unknown]
  - Injection site erythema [Unknown]
  - Nausea [Unknown]
